FAERS Safety Report 19312204 (Version 3)
Quarter: 2021Q2

REPORT INFORMATION
  Report Type: Spontaneous
  Country: US (occurrence: US)
  Receive Date: 20210527
  Receipt Date: 20210621
  Transmission Date: 20210717
  Serious: Yes (Hospitalization)
  Sender: FDA-Public Use
  Company Number: US-SA-2021SA172926

PATIENT
  Age: 50 Year
  Sex: Male

DRUGS (3)
  1. DUPIXENT [Suspect]
     Active Substance: DUPILUMAB
     Indication: ASTHMA
  2. DUPIXENT [Suspect]
     Active Substance: DUPILUMAB
     Indication: NASAL POLYPS
  3. FASENRA [Concomitant]
     Active Substance: BENRALIZUMAB
     Indication: ASTHMA

REACTIONS (5)
  - Stress [Unknown]
  - Feeling abnormal [Unknown]
  - Vasculitis [Unknown]
  - Cough [Unknown]
  - Malaise [Unknown]
